FAERS Safety Report 9591200 (Version 1)
Quarter: 2013Q4

REPORT INFORMATION
  Report Type: Spontaneous
  Country: US (occurrence: US)
  Receive Date: 20131003
  Receipt Date: 20131003
  Transmission Date: 20140711
  Serious: No
  Sender: FDA-Public Use
  Company Number: US-AMGEN-USASP2012074632

PATIENT
  Age: 63 Year
  Sex: Female
  Weight: 90.25 kg

DRUGS (12)
  1. ENBREL [Suspect]
     Indication: PRODUCT USED FOR UNKNOWN INDICATION
     Dosage: 25 MG, 2 TIMES/WK
     Route: 058
  2. PLAQUENIL                          /00072602/ [Concomitant]
     Dosage: 200 MG, UNK
  3. LIPITOR [Concomitant]
     Dosage: 40 MG, UNK
  4. TEKTURNA [Concomitant]
     Dosage: 150 MG, UNK
  5. EXFORGE [Concomitant]
     Dosage: 10-320 MG
  6. OMEPRAZOLE [Concomitant]
     Dosage: 20 MG, UNK
  7. IMURAN                             /00001501/ [Concomitant]
     Dosage: 50 MG, UNK
  8. VITAMIN B [Concomitant]
     Dosage: UNK
  9. VITAMIN D                          /00107901/ [Concomitant]
     Dosage: 2000 UNIT, UNK
  10. FOLIC ACID [Concomitant]
     Dosage: 20 MG, UNK
  11. LEVOTHYROXIN [Concomitant]
     Dosage: 200 MCG, UNK
  12. METOPROLOL [Concomitant]
     Dosage: 25 MG, UNK

REACTIONS (1)
  - Gastroenteritis viral [Unknown]
